FAERS Safety Report 13660792 (Version 2)
Quarter: 2017Q3

REPORT INFORMATION
  Report Type: Report from Study
  Country: US (occurrence: US)
  Receive Date: 20170616
  Receipt Date: 20170802
  Transmission Date: 20171127
  Serious: Yes (Hospitalization)
  Sender: FDA-Public Use
  Company Number: US-PFIZER INC-2017252056

PATIENT
  Age: 80 Year
  Sex: Female
  Weight: 61 kg

DRUGS (13)
  1. BUDESONIDE. [Concomitant]
     Active Substance: BUDESONIDE
     Indication: DYSPNOEA
     Dosage: UNK
     Route: 055
  2. PD-325,901 [Suspect]
     Active Substance: INVESTIGATIONAL PRODUCT
     Indication: NON-SMALL CELL LUNG CANCER STAGE IV
     Dosage: 5 MG, 2X/DAY CONTINUOUSLY
     Route: 048
     Dates: start: 20160803
  3. TIOTROPIUM-OLODATEROL [Concomitant]
     Indication: DYSPNOEA
     Dosage: UNK
     Route: 055
  4. TRIAMCINOLONE [Concomitant]
     Active Substance: TRIAMCINOLONE
     Indication: STOMATITIS
     Dosage: UNK
     Route: 048
     Dates: start: 20160823
  5. PALBOCICLIB [Suspect]
     Active Substance: PALBOCICLIB
     Indication: NON-SMALL CELL LUNG CANCER STAGE IV
     Dosage: 125 MG, CYCLIC (ONCE DAILY, 3 WEEKS ON/1 WEEK OFF)
     Route: 048
     Dates: start: 20160803
  6. PALBOCICLIB [Suspect]
     Active Substance: PALBOCICLIB
     Dosage: 100 MG, CYCLIC (ONCE DAILY, 3 WEEKS ON/1 WEEK OFF)
     Route: 048
     Dates: start: 20170426, end: 20170605
  7. PD-325,901 [Suspect]
     Active Substance: INVESTIGATIONAL PRODUCT
     Dosage: 5 MG, 1X/DAY CONTINUOUSLY
     Route: 048
     Dates: start: 20170426, end: 20170605
  8. CONSTULOSE [Concomitant]
     Active Substance: LACTULOSE
     Indication: CONSTIPATION
     Dosage: UNK
     Route: 048
     Dates: start: 20160817
  9. PRILOSEC [Concomitant]
     Active Substance: OMEPRAZOLE MAGNESIUM
     Indication: DYSPEPSIA
     Dosage: UNK
     Route: 048
  10. DEXAMETHASONE. [Concomitant]
     Active Substance: DEXAMETHASONE
     Indication: STOMATITIS
     Dosage: UNK
     Route: 048
     Dates: start: 20160916
  11. HYDROCODONE-IBUPROFEN [Concomitant]
     Active Substance: HYDROCODONE BITARTRATE\IBUPROFEN
     Indication: PAIN
     Dosage: UNK
     Route: 048
  12. ALBUTEROL /00139501/ [Concomitant]
     Active Substance: ALBUTEROL
     Indication: DYSPNOEA
     Dosage: UNK
     Route: 055
  13. ZOLEDRONIC ACID [Concomitant]
     Active Substance: ZOLEDRONIC ACID
     Indication: OSTEOPOROSIS PROPHYLAXIS
     Dosage: UNK
     Route: 048

REACTIONS (2)
  - Lung infection [Recovered/Resolved]
  - Dyspnoea [Recovered/Resolved]

NARRATIVE: CASE EVENT DATE: 20170605
